FAERS Safety Report 15133993 (Version 1)
Quarter: 2018Q3

REPORT INFORMATION
  Report Type: Report from Study
  Country: MX (occurrence: MX)
  Receive Date: 20180712
  Receipt Date: 20180712
  Transmission Date: 20181010
  Serious: Yes (Other)
  Sender: FDA-Public Use
  Company Number: PHHY2018MX043806

PATIENT
  Sex: Female
  Weight: 70 kg

DRUGS (1)
  1. TRILEPTAL [Suspect]
     Active Substance: OXCARBAZEPINE
     Indication: EPILEPSY
     Dosage: 2 DF (300 MG), BID 1 IN THE MORNING 1 AT NIGHT
     Route: 048

REACTIONS (1)
  - Diverticulitis [Not Recovered/Not Resolved]
